FAERS Safety Report 11425395 (Version 1)
Quarter: 2015Q3

REPORT INFORMATION
  Report Type: Spontaneous
  Country: US (occurrence: US)
  Receive Date: 20150821
  Receipt Date: 20150821
  Transmission Date: 20151125
  Serious: No
  Sender: FDA-Public Use
  Company Number: US-ELI_LILLY_AND_COMPANY-US201103002734

PATIENT
  Sex: Female

DRUGS (8)
  1. HUMULIN R [Suspect]
     Active Substance: INSULIN HUMAN
     Indication: DIABETES MELLITUS
     Dosage: 6 U, EACH MORNING
     Dates: start: 2001
  2. HUMULIN R [Suspect]
     Active Substance: INSULIN HUMAN
     Dosage: 8 U, OTHER
     Dates: start: 2001
  3. HUMULIN R [Suspect]
     Active Substance: INSULIN HUMAN
     Dosage: 6 U, EACH MORNING
     Dates: start: 2001
  4. HUMULIN N [Suspect]
     Active Substance: INSULIN HUMAN
     Indication: DIABETES MELLITUS
     Dosage: 34 U, EACH MORNING
     Dates: start: 2001
  5. HUMULIN N [Suspect]
     Active Substance: INSULIN HUMAN
     Dosage: 42 U, OTHER
     Dates: start: 2001
  6. HUMULIN R [Suspect]
     Active Substance: INSULIN HUMAN
     Dosage: 8 U, OTHER
     Dates: start: 2001
  7. HUMULIN R [Suspect]
     Active Substance: INSULIN HUMAN
     Dosage: 8 U, OTHER
     Dates: start: 2001
  8. HUMULIN R [Suspect]
     Active Substance: INSULIN HUMAN
     Dosage: 6 U, EACH MORNING
     Dates: start: 2001

REACTIONS (2)
  - Visual acuity reduced [Not Recovered/Not Resolved]
  - Hypoacusis [Not Recovered/Not Resolved]

NARRATIVE: CASE EVENT DATE: 2009
